FAERS Safety Report 4459316-5 (Version None)
Quarter: 2004Q3

REPORT INFORMATION
  Report Type: 
  Country: None (occurrence: None)
  Receive Date: 20040923
  Receipt Date: 20040923
  Transmission Date: 20050211
  Serious: No
  Sender: FDA-Public Use
  Company Number: None

PATIENT
  Sex: Female
  Weight: 68 kg

DRUGS (3)
  1. ABELCET  100MG/ 20ML  ENZON [Suspect]
     Indication: ASPERGILLOSIS
     Dosage: 340 MG ONCE INTRAVENOUS
     Route: 042
     Dates: start: 20040913, end: 20040913
  2. ABELCET  100MG/ 20ML  ENZON [Suspect]
     Indication: INFECTION
     Dosage: 340 MG ONCE INTRAVENOUS
     Route: 042
     Dates: start: 20040913, end: 20040913
  3. ABELCET  100MG/ 20ML  ENZON [Suspect]
     Indication: NERVOUS SYSTEM DISORDER
     Dosage: 340 MG ONCE INTRAVENOUS
     Route: 042
     Dates: start: 20040913, end: 20040913

REACTIONS (2)
  - HYPERTENSION [None]
  - INFUSION RELATED REACTION [None]
